FAERS Safety Report 15401644 (Version 1)
Quarter: 2018Q3

REPORT INFORMATION
  Report Type: Report from Study
  Country: US (occurrence: US)
  Receive Date: 20180919
  Receipt Date: 20180919
  Transmission Date: 20181010
  Serious: Yes (Other)
  Sender: FDA-Public Use
  Company Number: US-ASTELLAS-2018US025492

PATIENT
  Sex: Female

DRUGS (3)
  1. SOLIFENACIN [Suspect]
     Active Substance: SOLIFENACIN
     Indication: POLLAKIURIA
     Route: 048
  2. ATORVASTATIN [Concomitant]
     Active Substance: ATORVASTATIN
     Indication: BLOOD CHOLESTEROL
     Dosage: UNK UNK, UNKNOWN FREQ.
     Route: 065
  3. SOLIFENACIN [Suspect]
     Active Substance: SOLIFENACIN
     Indication: URGE INCONTINENCE

REACTIONS (9)
  - Blood pressure increased [Unknown]
  - Nocturia [Unknown]
  - Pollakiuria [Unknown]
  - Treatment noncompliance [Unknown]
  - Weight increased [Unknown]
  - Pain [Unknown]
  - Sleep disorder [Unknown]
  - Pelvic pain [Unknown]
  - Gastritis [Unknown]
